FAERS Safety Report 4314580-8 (Version None)
Quarter: 2004Q1

REPORT INFORMATION
  Report Type: 
  Country: None (occurrence: None)
  Receive Date: 20040308
  Receipt Date: 20040226
  Transmission Date: 20041129
  Serious: Yes (Disabling, Congenital Anomaly)
  Sender: FDA-Public Use
  Company Number: 2004UW03460

PATIENT
  Age: 1 Day
  Sex: Male

DRUGS (2)
  1. ELAVIL [Suspect]
  2. DESLORATADINE [Suspect]
     Dates: start: 20020322, end: 20020327

REACTIONS (3)
  - CRYPTORCHISM [None]
  - HERNIA CONGENITAL [None]
  - MATERNAL DRUGS AFFECTING FOETUS [None]
